FAERS Safety Report 7466165-2 (Version None)
Quarter: 2011Q2

REPORT INFORMATION
  Report Type: 
  Country: None (occurrence: None)
  Receive Date: 20110509
  Receipt Date: 20110426
  Transmission Date: 20111010
  Serious: Yes (Hospitalization)
  Sender: FDA-Public Use
  Company Number: PHHY2011JP36059

PATIENT
  Sex: Male

DRUGS (6)
  1. SORAFENIB TOSILATE [Concomitant]
     Indication: METASTATIC RENAL CELL CARCINOMA
     Dosage: 800 MG, UNK
     Route: 048
     Dates: start: 20080701, end: 20100706
  2. BLOPRESS [Concomitant]
     Dosage: 12 MG,
     Route: 048
  3. PREDONINE [Concomitant]
     Dosage: 5 MG, UNK
     Route: 048
     Dates: start: 20100811
  4. AFINITOR [Suspect]
     Dosage: 5 MG,
     Route: 048
     Dates: start: 20101014, end: 20110207
  5. BLOPRESS [Concomitant]
     Dosage: 12 MG,
     Route: 048
     Dates: start: 20100811
  6. AFINITOR [Suspect]
     Indication: METASTATIC RENAL CELL CARCINOMA
     Dosage: 10 MG,
     Route: 048
     Dates: start: 20100811, end: 20100901

REACTIONS (1)
  - ASCITES [None]
